FAERS Safety Report 10349932 (Version 1)
Quarter: 2014Q3

REPORT INFORMATION
  Report Type: Spontaneous
  Country: US (occurrence: None)
  Receive Date: 20140728
  Receipt Date: 20140728
  Transmission Date: 20150326
  Serious: Yes (Disabling)
  Sender: FDA-Public Use
  Company Number: None

PATIENT
  Age: 42 Year
  Sex: Female
  Weight: 74.84 kg

DRUGS (1)
  1. ROLAIDS EXTRA STRENGTH [Suspect]
     Active Substance: CALCIUM CARBONATE
     Indication: GASTROOESOPHAGEAL REFLUX DISEASE
     Dosage: 1 PILL
     Route: 048
     Dates: start: 20140723, end: 20140723

REACTIONS (4)
  - Abnormal dreams [None]
  - Restlessness [None]
  - Agitation [None]
  - Hallucination [None]

NARRATIVE: CASE EVENT DATE: 20140723
